FAERS Safety Report 7347229-0 (Version None)
Quarter: 2011Q1

REPORT INFORMATION
  Report Type: 
  Country: None (occurrence: None)
  Receive Date: 20110311
  Receipt Date: 20110301
  Transmission Date: 20110831
  Serious: Yes (Hospitalization, Other)
  Sender: FDA-Public Use
  Company Number: CA-ELI_LILLY_AND_COMPANY-CA201103000122

PATIENT
  Sex: Male

DRUGS (5)
  1. MICARDIS [Concomitant]
     Dosage: 80 MG, DAILY (1/D)
     Dates: start: 20021016
  2. ATACAND [Concomitant]
     Dosage: 16 MG, DAILY (1/D)
     Dates: start: 20021016
  3. RITALIN [Concomitant]
  4. ZYPREXA [Suspect]
     Indication: COGNITIVE DISORDER
     Route: 048
     Dates: start: 20011129
  5. IMURAN [Concomitant]
     Dosage: 1 D/F, UNK

REACTIONS (9)
  - DIABETES MELLITUS [None]
  - CELLULITIS [None]
  - HEPATITIS C [None]
  - CROHN'S DISEASE [None]
  - HAEMORRHOIDAL HAEMORRHAGE [None]
  - OFF LABEL USE [None]
  - HAEMORRHAGE SUBCUTANEOUS [None]
  - ANAL FISTULA [None]
  - APHTHOUS STOMATITIS [None]
